FAERS Safety Report 5079187-6 (Version None)
Quarter: 2006Q3

REPORT INFORMATION
  Report Type: 
  Country: None (occurrence: None)
  Receive Date: 20060814
  Receipt Date: 20060728
  Transmission Date: 20061208
  Serious: Yes (Other)
  Sender: FDA-Public Use
  Company Number: DE-GLAXOSMITHKLINE-D0050537A

PATIENT
  Age: 34 Year
  Sex: Female

DRUGS (2)
  1. ELMENDOS [Suspect]
     Indication: PROPHYLAXIS
     Route: 048
     Dates: start: 20030601
  2. AMITRIPTYLIN [Suspect]
     Indication: DEPRESSION
     Route: 048

REACTIONS (4)
  - ABORTION SPONTANEOUS [None]
  - DEPRESSION [None]
  - DRUG EXPOSURE DURING PREGNANCY [None]
  - PREGNANCY [None]
